FAERS Safety Report 12709107 (Version 1)
Quarter: 2016Q3

REPORT INFORMATION
  Report Type: Spontaneous
  Country: US (occurrence: None)
  Receive Date: 20160901
  Receipt Date: 20160901
  Transmission Date: 20161109
  Serious: No
  Sender: FDA-Public Use
  Company Number: None

PATIENT
  Age: 55 Year
  Sex: Female
  Weight: 62.6 kg

DRUGS (12)
  1. SERTRALINE 100 MG TABLET, 100 MG [Suspect]
     Active Substance: SERTRALINE HYDROCHLORIDE
     Indication: ANXIETY
     Dosage: IN THE MORNING TAKEN BY MOUTH
     Route: 048
     Dates: start: 20160523, end: 20160822
  2. LDN NALTREXONE [Concomitant]
  3. VITAMIN B COMPLEX [Concomitant]
     Active Substance: CYANOCOBALAMIN\DEXPANTHENOL\NIACINAMIDE\PYRIDOXINE HYDROCHLORIDE\RIBOFLAVIN 5^-PHOSPHATE SODIUM\THIAMINE HYDROCHLORIDE\VITAMIN B COMPLEX
  4. PROBIOTICS [Concomitant]
     Active Substance: PROBIOTICS NOS
  5. SERTRALINE 100 MG TABLET, 100 MG [Suspect]
     Active Substance: SERTRALINE HYDROCHLORIDE
     Indication: PANIC ATTACK
     Dosage: IN THE MORNING TAKEN BY MOUTH
     Route: 048
     Dates: start: 20160523, end: 20160822
  6. MAGNESIUM [Concomitant]
     Active Substance: MAGNESIUM
  7. VITAMIN D3 [Concomitant]
     Active Substance: CHOLECALCIFEROL
  8. SERTRALINE 100 MG TABLET, 100 MG [Suspect]
     Active Substance: SERTRALINE HYDROCHLORIDE
     Indication: DEPRESSION
     Dosage: IN THE MORNING TAKEN BY MOUTH
     Route: 048
     Dates: start: 20160523, end: 20160822
  9. ARMOUR THYROID [Concomitant]
     Active Substance: THYROID, PORCINE
  10. ENZYMES [Concomitant]
  11. PLANT BASED ESTROGEN REPLACEMENT TOPICAL CREAM [Concomitant]
  12. MINERALS [Concomitant]
     Active Substance: MINERALS

REACTIONS (6)
  - Hypersomnia [None]
  - Fatigue [None]
  - Dysgraphia [None]
  - Hallucination [None]
  - Impaired work ability [None]
  - Anger [None]

NARRATIVE: CASE EVENT DATE: 20160807
